FAERS Safety Report 9636083 (Version 1)
Quarter: 2013Q4

REPORT INFORMATION
  Report Type: Report from Study
  Country: CA (occurrence: CA)
  Receive Date: 20131021
  Receipt Date: 20131021
  Transmission Date: 20140711
  Serious: Yes (Other)
  Sender: FDA-Public Use
  Company Number: CA-MYLANLABS-2013S1022892

PATIENT
  Sex: Male

DRUGS (2)
  1. ETOMIDATE [Suspect]
     Dosage: 2MG (2 MG/ML)
     Route: 013
  2. ETOMIDATE [Suspect]
     Dosage: 6 ML/H (12 MG/H)
     Route: 013

REACTIONS (6)
  - Electroencephalogram abnormal [Unknown]
  - Nausea [Unknown]
  - Vomiting [Unknown]
  - Tachycardia [Unknown]
  - Hypertension [Unknown]
  - Chills [Unknown]
